FAERS Safety Report 18231862 (Version 2)
Quarter: 2020Q3

REPORT INFORMATION
  Report Type: Report from Study
  Country: None (occurrence: CA)
  Receive Date: 20200904
  Receipt Date: 20200929
  Transmission Date: 20201103
  Serious: Yes (Death, Hospitalization, Other)
  Sender: FDA-Public Use
  Company Number: CA-ABBVIE-20K-028-3552547-00

PATIENT
  Age: 78 Year
  Sex: Male
  Weight: 68.1 kg

DRUGS (5)
  1. DUODOPA [Suspect]
     Active Substance: CARBIDOPA\LEVODOPA
     Indication: PARKINSON^S DISEASE
     Dosage: LEVODOPA20MG/ML,CARBIDOPAMONOHYDRATE5MG/ML
     Route: 050
     Dates: start: 20171023
  2. ATROPINE. [Concomitant]
     Active Substance: ATROPINE
     Indication: PALLIATIVE CARE
  3. DUODOPA [Suspect]
     Active Substance: CARBIDOPA\LEVODOPA
  4. GLYCOPYRROLATE. [Concomitant]
     Active Substance: GLYCOPYRROLATE
     Indication: PALLIATIVE CARE
  5. HYDROMORPHONE [Concomitant]
     Active Substance: HYDROMORPHONE
     Indication: PALLIATIVE CARE

REACTIONS (7)
  - Urinary tract infection [Fatal]
  - Seizure [Recovered/Resolved]
  - Disease susceptibility [Unknown]
  - Urosepsis [Fatal]
  - Delirium [Not Recovered/Not Resolved]
  - Parkinson^s disease [Fatal]
  - Infarction [Unknown]

NARRATIVE: CASE EVENT DATE: 202008
